FAERS Safety Report 17282929 (Version 2)
Quarter: 2020Q1

REPORT INFORMATION
  Report Type: Spontaneous
  Country: IN (occurrence: IN)
  Receive Date: 20200117
  Receipt Date: 20200304
  Transmission Date: 20200409
  Serious: Yes (Death, Hospitalization, Other)
  Sender: FDA-Public Use
  Company Number: IN-JNJFOC-20200110069

PATIENT
  Age: 29 Year
  Sex: Female
  Weight: 47.4 kg

DRUGS (12)
  1. AMOXICILLIN W/CLAVULANIC ACID [Suspect]
     Active Substance: AMOXICILLIN\CLAVULANIC ACID
     Indication: TUBERCULOSIS
     Route: 048
     Dates: start: 20191204
  2. METOCLOPRAMIDE. [Concomitant]
     Active Substance: METOCLOPRAMIDE
     Indication: ANTIEMETIC SUPPORTIVE CARE
     Route: 048
     Dates: start: 20191204
  3. DELAMANID [Suspect]
     Active Substance: DELAMANID
     Indication: TUBERCULOSIS
     Route: 048
     Dates: start: 20191204
  4. IMIPENEM [Suspect]
     Active Substance: IMIPENEM
     Indication: TUBERCULOSIS
     Route: 042
     Dates: start: 20191204
  5. BEDAQUILINE [Suspect]
     Active Substance: BEDAQUILINE
     Indication: TUBERCULOSIS
     Route: 048
     Dates: start: 20191204
  6. PYRIDOXINE [Concomitant]
     Active Substance: PYRIDOXINE
     Indication: NEUROPATHY PERIPHERAL
     Route: 048
     Dates: start: 20191204
  7. ONDANSETRON [Concomitant]
     Active Substance: ONDANSETRON
     Indication: ANTIEMETIC SUPPORTIVE CARE
     Dosage: 1/2 TAB
     Route: 048
  8. GLYCOPYRRONIUM BROMIDE W/INDACATEROL MALEATE [Concomitant]
     Active Substance: GLYCOPYRROLATE\INDACATEROL MALEATE
     Indication: DYSPNOEA
  9. OMEPRAZOLE. [Concomitant]
     Active Substance: OMEPRAZOLE
     Indication: ANTACID THERAPY
     Route: 048
     Dates: start: 20191204
  10. CLOFAZIMINE [Suspect]
     Active Substance: CLOFAZIMINE
     Indication: TUBERCULOSIS
     Route: 048
     Dates: start: 20191204
  11. LINEZOLIDE [Suspect]
     Active Substance: LINEZOLID
     Indication: TUBERCULOSIS
     Route: 048
     Dates: start: 20191204
  12. PREGABALIN. [Concomitant]
     Active Substance: PREGABALIN
     Indication: NEUROPATHY PERIPHERAL
     Route: 048
     Dates: start: 20191204

REACTIONS (2)
  - Treatment failure [Unknown]
  - Dyspnoea [Fatal]

NARRATIVE: CASE EVENT DATE: 20191211
